FAERS Safety Report 7555071-0 (Version None)
Quarter: 2011Q2

REPORT INFORMATION
  Report Type: 
  Country: None (occurrence: None)
  Receive Date: 20110610
  Receipt Date: 20110531
  Transmission Date: 20111010
  Serious: Yes (Other)
  Sender: FDA-Public Use
  Company Number: 1000021441

PATIENT
  Age: 43 Year
  Sex: Male

DRUGS (2)
  1. SUMATRIPTAN SUCCINATE [Suspect]
     Indication: MIGRAINE
     Dates: start: 20100201
  2. CITALOPRAM HYDROBROMIDE [Suspect]

REACTIONS (3)
  - DRUG INTERACTION [None]
  - STRESS [None]
  - MIGRAINE [None]
